FAERS Safety Report 7987488-4 (Version None)
Quarter: 2011Q4

REPORT INFORMATION
  Report Type: 
  Country: None (occurrence: None)
  Receive Date: 20111216
  Receipt Date: 20111213
  Transmission Date: 20120403
  Serious: Yes (Death, Hospitalization, Other)
  Sender: FDA-Public Use
  Company Number: PHEH2008US06284

PATIENT
  Sex: Female

DRUGS (30)
  1. ALLOPURINOL [Concomitant]
  2. SYNTHROID [Concomitant]
  3. TRAZODONE HCL [Concomitant]
     Dosage: 50 MG, UNK
     Dates: start: 20060814, end: 20070307
  4. ZOMETA [Suspect]
  5. PERCOCET [Concomitant]
  6. MYSOLINE [Concomitant]
     Dosage: 50 MG, UNK
  7. ATENOLOL [Concomitant]
  8. OXYCONTIN [Concomitant]
  9. HYDROCHLOROTHIAZID [Concomitant]
     Dosage: 25 MG, QD
     Route: 048
  10. ACCUPRIL [Concomitant]
     Dosage: 20 MG, QD
  11. PHENERGAN [Concomitant]
  12. ZOLOFT [Concomitant]
     Dosage: 50 MG, UNK
  13. ULTRAM [Concomitant]
     Dosage: 50 MG, UNK
     Dates: start: 20060424
  14. DEXAMETHASONE [Concomitant]
     Dosage: 4 MG, UNK
     Route: 048
  15. FEMARA [Concomitant]
     Dosage: 2.5 MG, QD
  16. LISINOPRIL [Concomitant]
  17. VIOXX [Concomitant]
     Dosage: 25 MG, DAILY
  18. MIRALAX [Concomitant]
     Dosage: 1 QD PRN
     Route: 048
     Dates: start: 20071206, end: 20080826
  19. AROMASIN [Concomitant]
     Dosage: 25 MG, QD
     Route: 048
  20. ZOFRAN [Concomitant]
  21. NEXIUM [Concomitant]
  22. TENORMIN [Concomitant]
     Dosage: 50 MG, UNK
  23. MEGACE [Concomitant]
     Dosage: 5 ML, PRN
     Route: 048
  24. HYDROCHLOROTHIAZIDE [Concomitant]
  25. PROTONIX [Concomitant]
     Dosage: 40 MG, QD
     Dates: start: 20080626
  26. MORPHINE SULFATE [Concomitant]
     Dosage: 5 MG, UNK
  27. POTASSIUM CHLORIDE [Concomitant]
  28. PRIMIDONE [Concomitant]
     Dosage: 50 MG, QHS
     Route: 048
     Dates: start: 20080521
  29. ATIVAN [Concomitant]
     Dosage: 0.5 MG, UNK
     Dates: start: 20070403
  30. ATROPINE [Concomitant]

REACTIONS (59)
  - INJURY [None]
  - PSEUDOEPITHELIOMATOUS HYPERPLASIA [None]
  - TOOTH INFECTION [None]
  - SKIN CANCER [None]
  - SUBCUTANEOUS EMPHYSEMA [None]
  - EXPOSED BONE IN JAW [None]
  - SWELLING [None]
  - ABDOMINAL PAIN [None]
  - SCAR [None]
  - HYPOAESTHESIA [None]
  - HAEMORRHAGE [None]
  - GIANT CELL EPULIS [None]
  - IMPAIRED HEALING [None]
  - OSTEOARTHRITIS [None]
  - VOMITING [None]
  - DIARRHOEA [None]
  - PANCREATITIS [None]
  - GOUT [None]
  - SEBORRHOEIC KERATOSIS [None]
  - NEOPLASM PROGRESSION [None]
  - ASTHENIA [None]
  - CHOLECYSTITIS [None]
  - HEPATIC NEOPLASM MALIGNANT [None]
  - HEPATIC CIRRHOSIS [None]
  - UMBILICAL HERNIA [None]
  - BILE DUCT OBSTRUCTION [None]
  - OSTEOSCLEROSIS [None]
  - CARDIOMEGALY [None]
  - VENOUS ANGIOMA OF BRAIN [None]
  - HYPOVOLAEMIA [None]
  - NEOPLASM MALIGNANT [None]
  - OSTEOMYELITIS [None]
  - ANXIETY [None]
  - CHOLELITHIASIS [None]
  - MUSCULOSKELETAL PAIN [None]
  - INSOMNIA [None]
  - INFLAMMATION [None]
  - ALVEOLAR OSTEITIS [None]
  - RENAL CYST [None]
  - CONSTIPATION [None]
  - SMALL INTESTINAL OBSTRUCTION [None]
  - BONE LESION [None]
  - INTERVERTEBRAL DISC DEGENERATION [None]
  - AORTIC ARTERIOSCLEROSIS [None]
  - ACTINIC KERATOSIS [None]
  - INFECTION [None]
  - ARTHROPATHY [None]
  - TREMOR [None]
  - ATELECTASIS [None]
  - HAEMATEMESIS [None]
  - OESOPHAGITIS [None]
  - DIZZINESS [None]
  - OSTEONECROSIS OF JAW [None]
  - PAIN IN JAW [None]
  - EXCESSIVE GRANULATION TISSUE [None]
  - NEPHROLITHIASIS [None]
  - ASCITES [None]
  - METASTASES TO BONE [None]
  - LUNG NEOPLASM [None]
